FAERS Safety Report 21482272 (Version 1)
Quarter: 2022Q4

REPORT INFORMATION
  Report Type: Report from Study
  Country: NL (occurrence: NL)
  Receive Date: 20221020
  Receipt Date: 20221020
  Transmission Date: 20230113
  Serious: Yes (Death, Hospitalization, Other)
  Sender: FDA-Public Use
  Company Number: NL-ALS-000799

PATIENT
  Age: 70 Year
  Sex: Female

DRUGS (18)
  1. METFORMIN [Suspect]
     Active Substance: METFORMIN HYDROCHLORIDE
     Indication: Type 2 diabetes mellitus
     Route: 065
  2. FENTANYL [Suspect]
     Active Substance: FENTANYL
     Indication: Pain
     Dosage: 12.5 MICROGRAM/HOUR
     Route: 062
  3. ALECTINIB [Suspect]
     Active Substance: ALECTINIB
     Indication: Pain
     Dosage: 600 MG TWICE DAILY
     Route: 065
  4. ENALAPRIL [Concomitant]
     Active Substance: ENALAPRIL
     Indication: Type 2 diabetes mellitus
     Route: 065
  5. NAPROXEN [Concomitant]
     Active Substance: NAPROXEN
     Indication: Pain
     Route: 065
  6. ACETAMINOPHEN [Concomitant]
     Active Substance: ACETAMINOPHEN
     Indication: Pain
     Dosage: FOUR TIMES 1000 MG DAILY
     Route: 065
  7. METOCLOPRAMIDE [Concomitant]
     Active Substance: METOCLOPRAMIDE
     Indication: Nausea
     Dosage: THREE TIMES DAILY
     Route: 065
  8. POLYETHYLENE GLYCOLS [Concomitant]
     Active Substance: POLYETHYLENE GLYCOLS
     Indication: Constipation
     Route: 065
  9. LACTULOSE [Concomitant]
     Active Substance: LACTULOSE
     Indication: Constipation
     Route: 065
  10. SODIUM PHOSPHATE [Concomitant]
     Active Substance: SODIUM PHOSPHATE
     Indication: Constipation
     Route: 065
  11. TEMAZEPAM [Concomitant]
     Active Substance: TEMAZEPAM
     Indication: Product used for unknown indication
     Dosage: ONCE DAILY
     Route: 065
  12. NADROPARIN [Concomitant]
     Active Substance: NADROPARIN
     Indication: Embolism venous
     Dosage: 2850 IU
     Route: 065
  13. INSULIN ASPART [Concomitant]
     Active Substance: INSULIN ASPART
     Indication: Hyperglycaemia
     Route: 065
  14. PREDNISOLONE [Concomitant]
     Active Substance: PREDNISOLONE
     Indication: Product used for unknown indication
     Dosage: 40 MG DAILY WAS STARTED FOR 7 DAYS
     Route: 042
  15. FENTANYL [Suspect]
     Active Substance: FENTANYL
     Indication: Pain
     Dosage: 50 MICROGRAM/HOUR
     Route: 065
  16. ALECTINIB [Suspect]
     Active Substance: ALECTINIB
     Indication: Pain
     Route: 065
  17. ALECTINIB [Suspect]
     Active Substance: ALECTINIB
     Indication: Pain
     Route: 065
  18. FENTANYL [Suspect]
     Active Substance: FENTANYL
     Indication: Pain
     Dosage: 200 MICROGRAMS PER DAY
     Route: 060

REACTIONS (15)
  - Non-small cell lung cancer [Fatal]
  - Lymphadenopathy [Unknown]
  - Hyponatraemia [Unknown]
  - Oliguria [Unknown]
  - Skin turgor decreased [Unknown]
  - Anaemia [Unknown]
  - Thrombocytosis [Unknown]
  - Leukocytosis [Unknown]
  - C-reactive protein increased [Unknown]
  - Hypercalcaemia [Unknown]
  - Gamma-glutamyltransferase [Unknown]
  - Pelvic fracture [Unknown]
  - Blood pressure systolic increased [Unknown]
  - Blood pressure diastolic decreased [Unknown]
  - Polyuria [Unknown]
